FAERS Safety Report 15458343 (Version 1)
Quarter: 2018Q3

REPORT INFORMATION
  Report Type: Spontaneous
  Country: US (occurrence: US)
  Receive Date: 20180929
  Receipt Date: 20180929
  Transmission Date: 20181010
  Serious: Yes (Disabling, Other)
  Sender: FDA-Public Use
  Company Number: None

PATIENT
  Age: 22 Year
  Sex: Male
  Weight: 47.7 kg

DRUGS (6)
  1. MAGNESIUM 250MG [Concomitant]
  2. VITAMIN D 5000 IU [Concomitant]
  3. VYVANSE [Suspect]
     Active Substance: LISDEXAMFETAMINE DIMESYLATE
     Indication: ATTENTION DEFICIT/HYPERACTIVITY DISORDER
     Dosage: ?          QUANTITY:30 CAPSULE(S);?
     Route: 048
     Dates: start: 20170131, end: 20180922
  4. COQ10 [Concomitant]
     Active Substance: UBIDECARENONE
  5. PRISTIQ EXTENDED?RELEASE [Concomitant]
     Active Substance: DESVENLAFAXINE SUCCINATE
  6. FLONASE [Concomitant]
     Active Substance: FLUTICASONE PROPIONATE

REACTIONS (11)
  - Hypoaesthesia [None]
  - Weight decreased [None]
  - Gait disturbance [None]
  - General physical health deterioration [None]
  - Neuropathy peripheral [None]
  - Drug withdrawal syndrome [None]
  - Vitamin D decreased [None]
  - Therapy cessation [None]
  - Malaise [None]
  - Fear [None]
  - Fall [None]

NARRATIVE: CASE EVENT DATE: 20180307
